FAERS Safety Report 25377740 (Version 1)
Quarter: 2025Q2

REPORT INFORMATION
  Report Type: Spontaneous
  Country: DK (occurrence: DK)
  Receive Date: 20250530
  Receipt Date: 20250530
  Transmission Date: 20250716
  Serious: Yes (Death, Hospitalization)
  Sender: STRIDES
  Company Number: DK-STRIDES ARCOLAB LIMITED-2024SP017180

PATIENT
  Age: 6 Decade
  Sex: Female

DRUGS (4)
  1. PREDNISOLONE [Suspect]
     Active Substance: PREDNISOLONE
     Indication: Progressive multifocal leukoencephalopathy
     Route: 065
  2. AZATHIOPRINE [Suspect]
     Active Substance: AZATHIOPRINE
     Indication: Systemic lupus erythematosus
     Route: 065
  3. SERTRALINE [Suspect]
     Active Substance: SERTRALINE HYDROCHLORIDE
     Indication: Anxiety
     Route: 065
  4. PEMBROLIZUMAB [Concomitant]
     Active Substance: PEMBROLIZUMAB
     Indication: Progressive multifocal leukoencephalopathy
     Route: 065

REACTIONS (7)
  - Drug ineffective for unapproved indication [Fatal]
  - Lymphopenia [Recovering/Resolving]
  - Progressive multifocal leukoencephalopathy [Unknown]
  - JC virus infection [Recovered/Resolved]
  - Escherichia urinary tract infection [Unknown]
  - C-reactive protein increased [Unknown]
  - Drug ineffective [Unknown]
